FAERS Safety Report 6639661-5 (Version None)
Quarter: 2010Q1

REPORT INFORMATION
  Report Type: 
  Country: None (occurrence: None)
  Receive Date: 20100315
  Receipt Date: 20100302
  Transmission Date: 20100710
  Serious: Yes (Hospitalization, Other)
  Sender: FDA-Public Use
  Company Number: 008171

PATIENT
  Sex: Male

DRUGS (3)
  1. KEPPRA [Suspect]
     Indication: EPILEPSY
     Dosage: 750 MG BID ORAL
     Route: 048
  2. CARBAMAZEPINE [Concomitant]
  3. CLOBAZAM [Concomitant]

REACTIONS (3)
  - GASTROINTESTINAL OBSTRUCTION [None]
  - MALABSORPTION [None]
  - NEOPLASM MALIGNANT [None]
